FAERS Safety Report 9229487 (Version 3)
Quarter: 2013Q2

REPORT INFORMATION
  Report Type: Spontaneous
  Country: AR (occurrence: AR)
  Receive Date: 20130412
  Receipt Date: 20130502
  Transmission Date: 20140414
  Serious: Yes (Other)
  Sender: FDA-Public Use
  Company Number: AR-BIOMARINAP-AR-2013-100612

PATIENT
  Age: 22 Year
  Sex: Female
  Weight: 29 kg

DRUGS (2)
  1. NAGLAZYME [Suspect]
     Indication: MUCOPOLYSACCHARIDOSIS VI
     Dosage: 30 MG, UNK
     Route: 042
     Dates: start: 20080312
  2. NAGLAZYME [Suspect]
     Indication: MUCOPOLYSACCHARIDOSIS VI

REACTIONS (3)
  - Cervical cord compression [Unknown]
  - Muscle spasticity [Unknown]
  - Gait disturbance [Unknown]
